FAERS Safety Report 18651033 (Version 1)
Quarter: 2020Q4

REPORT INFORMATION
  Report Type: Spontaneous
  Country: MY (occurrence: MY)
  Receive Date: 20201222
  Receipt Date: 20201222
  Transmission Date: 20210114
  Serious: Yes (Death)
  Sender: FDA-Public Use
  Company Number: MY-FRESENIUS KABI-FK202013774

PATIENT
  Age: 67 Year
  Sex: Female

DRUGS (1)
  1. GEMCITABINE. [Suspect]
     Active Substance: GEMCITABINE
     Indication: BREAST CANCER
     Dosage: GEMCITABINE?HYDROCHLORIDE (GEMITA?FOR?INJECTION)
     Route: 042

REACTIONS (3)
  - Cough [Fatal]
  - Dyspnoea [Fatal]
  - Pyrexia [Fatal]
